FAERS Safety Report 15315016 (Version 2)
Quarter: 2018Q3

REPORT INFORMATION
  Report Type: Report from Study
  Country: CA (occurrence: CA)
  Receive Date: 20180824
  Receipt Date: 20180917
  Transmission Date: 20181010
  Serious: Yes (Other)
  Sender: FDA-Public Use
  Company Number: CA-AMGEN-CANSL2018115563

PATIENT
  Age: 73 Year
  Sex: Female
  Weight: 37.5 kg

DRUGS (12)
  1. SENOKOT [Concomitant]
     Active Substance: SENNOSIDES
     Dosage: 8.6 MG?50
     Route: 048
     Dates: start: 20180724
  2. NEURONTIN [Concomitant]
     Active Substance: GABAPENTIN
     Dosage: 300 MG, (2 CAPS PO AM., 2 CAP PO 4 PM, I CAP PO QHS
     Dates: start: 20180704
  3. BACLOFEN. [Concomitant]
     Active Substance: BACLOFEN
     Dosage: 10 MG, QD
     Route: 048
     Dates: start: 20171218
  4. APO VENLAFAXINE [Concomitant]
     Active Substance: VENLAFAXINE HYDROCHLORIDE
     Dosage: 75 MG, QD
     Dates: start: 20180704
  5. PROLIA [Suspect]
     Active Substance: DENOSUMAB
     Indication: OSTEOPOROSIS
     Dosage: 60 MG, Q6MO
     Route: 058
     Dates: start: 20170214
  6. HYDROMORPHONE [Concomitant]
     Active Substance: HYDROMORPHONE
     Dosage: 2 MG, AS NECESSARY
     Route: 048
     Dates: start: 20180704
  7. ABILIFY [Concomitant]
     Active Substance: ARIPIPRAZOLE
     Dosage: UNK
     Dates: start: 20180704
  8. AURO SOLIFENACIN [Concomitant]
     Dosage: UNK
     Dates: start: 20180704
  9. MACROBID [Concomitant]
     Active Substance: NITROFURANTOIN\NITROFURANTOIN MONOHYDRATE
     Dosage: 0.1 UNK, BID
     Dates: start: 20100302
  10. DUAKLIR GENUAIR [Concomitant]
     Active Substance: ACLIDINIUM BROMIDE\FORMOTEROL FUMARATE
     Dosage: 400?12 MCG INH .1 SPRAY
     Dates: start: 20171011
  11. FUCIDIN?HYDRCORTISONE [Concomitant]
     Dosage: 1 %, TID
     Dates: start: 20090228
  12. MIRTAZAPINE. [Concomitant]
     Active Substance: MIRTAZAPINE
     Dosage: 30 MG, AS NECESSARY
     Route: 048
     Dates: start: 20180704

REACTIONS (6)
  - Post procedural infection [Unknown]
  - Neuropathy peripheral [Unknown]
  - Emphysema [Unknown]
  - Exostosis of jaw [Unknown]
  - Loose tooth [Unknown]
  - Thyroid mass [Unknown]

NARRATIVE: CASE EVENT DATE: 2018
